FAERS Safety Report 12285333 (Version 2)
Quarter: 2016Q2

REPORT INFORMATION
  Report Type: Spontaneous
  Country: DE (occurrence: DE)
  Receive Date: 20160420
  Receipt Date: 20160519
  Transmission Date: 20160815
  Serious: Yes (Other)
  Sender: FDA-Public Use
  Company Number: PHHY2016DE052153

PATIENT
  Sex: Male
  Weight: 94 kg

DRUGS (6)
  1. TORASEMID [Concomitant]
     Active Substance: TORSEMIDE
     Indication: HYPERTENSION
     Dosage: 1 DF, BID
     Route: 048
  2. ENTRESTO [Suspect]
     Active Substance: SACUBITRIL\VALSARTAN
     Dosage: 100 MG (49/51 MG), UNK
     Route: 048
     Dates: start: 20160314, end: 20160411
  3. SIMVA [Concomitant]
     Indication: HYPERLIPIDAEMIA
     Dosage: 1 DF, QD
     Route: 048
  4. TORASEMID [Concomitant]
     Active Substance: TORSEMIDE
     Indication: CORONARY ARTERY DISEASE
  5. ENTRESTO [Suspect]
     Active Substance: SACUBITRIL\VALSARTAN
     Indication: CARDIAC FAILURE CHRONIC
     Dosage: 50 MG (24/26 MG), UNK
     Route: 048
     Dates: start: 20160226, end: 20160313
  6. FALITHROM [Concomitant]
     Active Substance: PHENPROCOUMON
     Indication: ATRIAL FIBRILLATION
     Route: 048

REACTIONS (2)
  - Eye haemorrhage [Recovered/Resolved]
  - Blood pressure systolic increased [Recovered/Resolved]

NARRATIVE: CASE EVENT DATE: 20160405
